FAERS Safety Report 4701019-3 (Version None)
Quarter: 2005Q2

REPORT INFORMATION
  Report Type: 
  Country: None (occurrence: None)
  Receive Date: 20050624
  Receipt Date: 20050611
  Transmission Date: 20051028
  Serious: Yes (Hospitalization, Other)
  Sender: FDA-Public Use
  Company Number: 2005063643

PATIENT
  Age: 54 Year
  Sex: Female
  Weight: 84.369 kg

DRUGS (8)
  1. GEODON [Suspect]
     Indication: BIPOLAR DISORDER
     Dosage: 160 MG (80 MG, 2 IN 1 D), ORAL
     Route: 048
  2. GLIPIZIDE [Suspect]
     Indication: BLOOD GLUCOSE INCREASED
     Dosage: 2.5 MG
     Route: 048
     Dates: start: 20050401
  3. METFORMIN HCL [Concomitant]
  4. VENLAFAXINE HCL [Concomitant]
  5. VALPROATE SODIUM [Concomitant]
  6. FENOFIBRATE [Concomitant]
  7. PRAVASTATIN [Concomitant]
  8. OMEPRAZOLE [Concomitant]

REACTIONS (7)
  - BLOOD GLUCOSE INCREASED [None]
  - DECREASED APPETITE [None]
  - GLYCOSYLATED HAEMOGLOBIN INCREASED [None]
  - NASOPHARYNGITIS [None]
  - OEDEMA PERIPHERAL [None]
  - THROMBOSIS [None]
  - WEIGHT DECREASED [None]
